FAERS Safety Report 16697346 (Version 1)
Quarter: 2019Q3

REPORT INFORMATION
  Report Type: Spontaneous
  Country: IE (occurrence: IE)
  Receive Date: 20190813
  Receipt Date: 20190813
  Transmission Date: 20191004
  Serious: Yes (Other)
  Sender: FDA-Public Use
  Company Number: IE-IMPAX LABORATORIES, LLC-2019-IPXL-01611

PATIENT
  Age: 3 Year
  Sex: Female

DRUGS (1)
  1. NITROFURANTOIN MACROCRYSTALS [Suspect]
     Active Substance: NITROFURANTOIN
     Indication: PROPHYLAXIS URINARY TRACT INFECTION
     Dosage: UNK, SINCE LAST 3 MONTHS
     Route: 065

REACTIONS (2)
  - Hepatitis A [Recovered/Resolved]
  - Encephalitis [Recovered/Resolved]
